FAERS Safety Report 20369473 (Version 1)
Quarter: 2022Q1

REPORT INFORMATION
  Report Type: Spontaneous
  Country: US (occurrence: None)
  Receive Date: 20220121
  Receipt Date: 20220121
  Transmission Date: 20220424
  Serious: Yes (Life-Threatening)
  Sender: FDA-Public Use
  Company Number: None

PATIENT
  Sex: Male

DRUGS (1)
  1. LEVETIRACETAM [Suspect]
     Active Substance: LEVETIRACETAM
     Indication: Juvenile myoclonic epilepsy
     Dosage: FREQUENCY : DAILY;?

REACTIONS (5)
  - Seizure [None]
  - Fatigue [None]
  - Feeling abnormal [None]
  - Product substitution issue [None]
  - Therapeutic response changed [None]
